FAERS Safety Report 5342249-X (Version None)
Quarter: 2007Q2

REPORT INFORMATION
  Report Type: 
  Country: None (occurrence: None)
  Receive Date: 20070601
  Receipt Date: 20070522
  Transmission Date: 20071010
  Serious: Yes (Life-Threatening)
  Sender: FDA-Public Use
  Company Number: JP-ROCHE-489375

PATIENT
  Age: 10 Year
  Sex: Female
  Weight: 28 kg

DRUGS (5)
  1. TAMIFLU [Suspect]
     Route: 048
     Dates: start: 20070316, end: 20070317
  2. ASTOMIN [Concomitant]
     Route: 048
     Dates: start: 20060316, end: 20060327
  3. PERIACTIN [Concomitant]
     Route: 048
     Dates: start: 20070316, end: 20070327
  4. NEUTASE [Concomitant]
     Route: 048
     Dates: start: 20070316, end: 20070327
  5. TRANSAMIN [Concomitant]
     Route: 048
     Dates: start: 20070316, end: 20070327

REACTIONS (1)
  - ABNORMAL BEHAVIOUR [None]
